FAERS Safety Report 8530314-5 (Version None)
Quarter: 2012Q3

REPORT INFORMATION
  Report Type: 
  Country: None (occurrence: None)
  Receive Date: 20120723
  Receipt Date: 20120718
  Transmission Date: 20120928
  Serious: Yes (Other)
  Sender: FDA-Public Use
  Company Number: US-PFIZER INC-2012174104

PATIENT
  Sex: Female

DRUGS (1)
  1. PROTONIX [Suspect]
     Dosage: 40 MG, 1X/DAY (FOR ONE WEEK)
     Route: 048

REACTIONS (3)
  - CONTUSION [None]
  - VAGINAL HAEMORRHAGE [None]
  - PROTHROMBIN TIME PROLONGED [None]
